FAERS Safety Report 16232543 (Version 49)
Quarter: 2024Q1

REPORT INFORMATION
  Report Type: Report from Study
  Country: CH (occurrence: CH)
  Receive Date: 20190424
  Receipt Date: 20240329
  Transmission Date: 20240410
  Serious: Yes (Hospitalization, Disabling, Other)
  Sender: FDA-Public Use
  Company Number: CH-BOEHRINGERINGELHEIM-2019-BI-002252

PATIENT
  Age: 79 Year
  Sex: Male
  Weight: 56 kg

DRUGS (28)
  1. OFEV [Suspect]
     Active Substance: NINTEDANIB
     Indication: Idiopathic pulmonary fibrosis
     Route: 048
     Dates: start: 20200907
  2. OFEV [Suspect]
     Active Substance: NINTEDANIB
     Route: 048
     Dates: start: 20190113, end: 20190214
  3. OFEV [Suspect]
     Active Substance: NINTEDANIB
     Route: 048
     Dates: start: 20190215, end: 20190315
  4. OFEV [Suspect]
     Active Substance: NINTEDANIB
     Route: 048
     Dates: start: 20190411
  5. OFEV [Suspect]
     Active Substance: NINTEDANIB
     Dosage: 100 MG AM +150 MG EVENING
     Route: 048
     Dates: start: 20191106
  6. PREDNISOLONE [Concomitant]
     Active Substance: PREDNISOLONE
     Indication: Collagen disorder
     Dates: start: 201601
  7. PREDNISOLONE [Concomitant]
     Active Substance: PREDNISOLONE
     Dates: end: 201901
  8. PREDNISOLONE [Concomitant]
     Active Substance: PREDNISOLONE
     Dates: start: 201901
  9. PREDNISOLONE [Concomitant]
     Active Substance: PREDNISOLONE
     Dates: end: 20190228
  10. PREDNISOLONE [Concomitant]
     Active Substance: PREDNISOLONE
     Dates: start: 20190301
  11. PREDNISOLONE [Concomitant]
     Active Substance: PREDNISOLONE
  12. PREDNISOLONE [Concomitant]
     Active Substance: PREDNISOLONE
     Dates: start: 20200131
  13. PREDNISOLONE [Concomitant]
     Active Substance: PREDNISOLONE
     Dates: start: 20200507
  14. PREDNISOLONE [Concomitant]
     Active Substance: PREDNISOLONE
  15. Calcimagnon D3 forte [Concomitant]
     Indication: Osteopenia
     Dosage: DOSE: 800/1000
  16. PANTOZOL [Concomitant]
     Active Substance: PANTOPRAZOLE SODIUM
     Indication: Product used for unknown indication
  17. PANTOZOL [Concomitant]
     Active Substance: PANTOPRAZOLE SODIUM
  18. Atrovent prepared ampoules [Concomitant]
     Indication: Product used for unknown indication
     Dosage: DOSE:2ML/250MI?PREPARED AMPOULES
  19. DYMISTA [Concomitant]
     Active Substance: AZELASTINE HYDROCHLORIDE\FLUTICASONE PROPIONATE
     Indication: Product used for unknown indication
     Dosage: NASAL SPRAY
  20. FRESUBIN [Concomitant]
     Active Substance: AMINO ACIDS\DEXTROSE\ELECTROLYTES NOS\SOYBEAN OIL\VITAMINS
     Indication: Product used for unknown indication
     Dosage: 1-2 PER DAY
  21. ACTONEL [Concomitant]
     Active Substance: RISEDRONATE SODIUM
     Indication: Drug therapy
     Dates: start: 202002
  22. Oxygen therapy (concentrator) [Concomitant]
     Indication: Product used for unknown indication
  23. sage tea [Concomitant]
     Indication: Cough
     Dosage: TEA
  24. MYCOPHENOLATE MOFETIL [Concomitant]
     Active Substance: MYCOPHENOLATE MOFETIL
     Indication: Product used for unknown indication
     Route: 065
     Dates: start: 202009, end: 202010
  25. LEVOTHYROXINE [Concomitant]
     Active Substance: LEVOTHYROXINE\LEVOTHYROXINE SODIUM
     Indication: Product used for unknown indication
  26. ZINC [Concomitant]
     Active Substance: PYRITHIONE ZINC\ZINC\ZINC CHLORIDE
     Indication: Product used for unknown indication
  27. SULFAMETHOXAZOLE\TRIMETHOPRIM [Concomitant]
     Active Substance: SULFAMETHOXAZOLE\TRIMETHOPRIM
     Indication: Product used for unknown indication
     Dosage: 800/160MG
  28. Ventolin ready-to-use ampoules 5mg/ml (ml) [Concomitant]
     Indication: Product used for unknown indication
     Dosage: 0,25-0-0,24 + RESERVE

REACTIONS (34)
  - Weight decreased [Recovered/Resolved]
  - Fatigue [Recovered/Resolved]
  - Metastases to lymph nodes [Unknown]
  - Metastases to bone [Unknown]
  - Prostate cancer metastatic [Unknown]
  - Pneumonia [Recovering/Resolving]
  - Respiratory distress [Recovered/Resolved]
  - Intervertebral disc protrusion [Recovered/Resolved]
  - Fatigue [Not Recovered/Not Resolved]
  - Dyspnoea [Not Recovered/Not Resolved]
  - Back pain [Not Recovered/Not Resolved]
  - Pulmonary function test decreased [Not Recovered/Not Resolved]
  - Decreased appetite [Recovered/Resolved]
  - Weight increased [Recovered/Resolved]
  - Weight decreased [Not Recovered/Not Resolved]
  - Increased appetite [Recovered/Resolved]
  - Decreased appetite [Recovered/Resolved]
  - Weight decreased [Recovered/Resolved]
  - Cough [Not Recovered/Not Resolved]
  - Malaise [Unknown]
  - Dyspnoea exertional [Recovered/Resolved]
  - Frequent bowel movements [Recovered/Resolved]
  - Productive cough [Recovered/Resolved]
  - Weight decreased [Recovered/Resolved]
  - Diarrhoea [Recovered/Resolved]
  - Abdominal pain upper [Recovered/Resolved]
  - Weight increased [Recovered/Resolved]
  - Hypothyroidism [Recovered/Resolved]
  - Frequent bowel movements [Recovered/Resolved]
  - Weight decreased [Recovered/Resolved]
  - Hyponatraemia [Recovering/Resolving]
  - Malnutrition [Unknown]
  - Normochromic normocytic anaemia [Unknown]
  - Asthenia [Unknown]

NARRATIVE: CASE EVENT DATE: 20190523
